FAERS Safety Report 6420091-6 (Version None)
Quarter: 2009Q4

REPORT INFORMATION
  Report Type: 
  Country: None (occurrence: None)
  Receive Date: 20091029
  Receipt Date: 20091022
  Transmission Date: 20100525
  Serious: Yes (Hospitalization)
  Sender: FDA-Public Use
  Company Number: FR-PFIZER INC-2009271523

PATIENT
  Age: 60 Year

DRUGS (1)
  1. XALATAN [Suspect]
     Indication: OCULAR HYPERTENSION
     Dosage: 1 GTT, 1X/DAY
     Route: 047
     Dates: start: 20090901

REACTIONS (2)
  - EYELID OEDEMA [None]
  - PRINZMETAL ANGINA [None]
